FAERS Safety Report 10810885 (Version 2)
Quarter: 2015Q2

REPORT INFORMATION
  Report Type: Report from Study
  Country: DE (occurrence: None)
  Receive Date: 20150212
  Receipt Date: 20150420
  Transmission Date: 20150821
  Serious: Yes (Hospitalization, Other)
  Sender: FDA-Public Use
  Company Number: DE2015GSK013448

PATIENT
  Sex: Male

DRUGS (1)
  1. MARAVIROC (MARAVIROC) U NKNOWN [Suspect]
     Active Substance: MARAVIROC
     Dates: start: 20110311

REACTIONS (3)
  - Lymphangiosis carcinomatosa [None]
  - Metastases to liver [None]
  - Cholecystitis chronic [None]

NARRATIVE: CASE EVENT DATE: 20141124
